FAERS Safety Report 9291772 (Version 2)
Quarter: 2014Q2

REPORT INFORMATION
  Report Type: Spontaneous
  Country: FR (occurrence: FR)
  Receive Date: 20130516
  Receipt Date: 20140526
  Transmission Date: 20141212
  Serious: Yes (Hospitalization)
  Sender: FDA-Public Use
  Company Number: FR-ROCHE-1224910

PATIENT
  Age: 58 Year
  Sex: Female

DRUGS (5)
  1. PEGASYS [Suspect]
     Indication: HEPATITIS C
     Route: 048
     Dates: start: 20130122, end: 20130422
  2. RIBAVIRIN [Suspect]
     Indication: HEPATITIS C
     Route: 048
     Dates: start: 20130122, end: 20130327
  3. RIBAVIRIN [Suspect]
     Route: 048
     Dates: end: 20130422
  4. INCIVO [Suspect]
     Indication: HEPATITIS C
     Route: 048
     Dates: start: 20130122, end: 20130408
  5. FOLIC ACID [Concomitant]

REACTIONS (1)
  - Drug reaction with eosinophilia and systemic symptoms [Recovered/Resolved]
